FAERS Safety Report 26062596 (Version 1)
Quarter: 2025Q4

REPORT INFORMATION
  Report Type: Spontaneous
  Country: US (occurrence: None)
  Receive Date: 20251118
  Receipt Date: 20251118
  Transmission Date: 20260118
  Serious: Yes (Other)
  Sender: FDA-CTU
  Company Number: None

PATIENT
  Sex: Female

DRUGS (11)
  1. IBRANCE [Suspect]
     Active Substance: PALBOCICLIB
     Indication: Breast cancer female
     Route: 048
     Dates: start: 20231027
  2. ATORVASTATIN [Concomitant]
     Active Substance: ATORVASTATIN
  3. FASLODEX INJ 250/SML [Concomitant]
  4. HUMALOG [Concomitant]
     Active Substance: INSULIN LISPRO
  5. IBRANCE [Concomitant]
     Active Substance: PALBOCICLIB
  6. JARDIANCE [Concomitant]
     Active Substance: EMPAGLIFLOZIN
  7. METFORMIN TAB 1000MG [Concomitant]
  8. OZEMPIC INJ 2MG/3ML [Concomitant]
  9. RAMIPRIL CAP5MG [Concomitant]
  10. TRESIBA INJ 100UNIT [Concomitant]
  11. VITAMIN D CAP 50000UNT [Concomitant]

REACTIONS (2)
  - Surgery [None]
  - Therapy interrupted [None]
